FAERS Safety Report 7740726-5 (Version None)
Quarter: 2011Q3

REPORT INFORMATION
  Report Type: 
  Country: None (occurrence: None)
  Receive Date: 20110909
  Receipt Date: 20110830
  Transmission Date: 20111222
  Serious: Yes (Other)
  Sender: FDA-Public Use
  Company Number: BR-SANOFI-AVENTIS-2011SA056284

PATIENT
  Age: 85 Year
  Sex: Female

DRUGS (6)
  1. ALL OTHER THERAPEUTIC PRODUCTS [Concomitant]
     Dates: start: 20110101
  2. SOLOSTAR [Suspect]
  3. CAPTOPRIL [Concomitant]
     Indication: BLOOD PRESSURE
     Route: 048
  4. VITAMINS WITH MINERALS [Concomitant]
     Indication: VITAMIN SUPPLEMENTATION
     Dates: start: 20110801
  5. LANTUS [Suspect]
     Indication: TYPE 2 DIABETES MELLITUS
     Route: 058
     Dates: start: 20110101
  6. APIDRA [Suspect]

REACTIONS (8)
  - BLINDNESS TRANSIENT [None]
  - HYPERGLYCAEMIA [None]
  - AGITATION [None]
  - AGGRESSION [None]
  - PERIPHERAL COLDNESS [None]
  - PALLOR [None]
  - HYPOTENSION [None]
  - NERVOUSNESS [None]
